FAERS Safety Report 5385088-6 (Version None)
Quarter: 2007Q3

REPORT INFORMATION
  Report Type: 
  Country: None (occurrence: None)
  Receive Date: 20070709
  Receipt Date: 20070621
  Transmission Date: 20080115
  Serious: Yes (Hospitalization)
  Sender: FDA-Public Use
  Company Number: 8016151

PATIENT
  Age: 28 Year
  Sex: Female
  Weight: 79 kg

DRUGS (6)
  1. KEPPRA [Suspect]
     Indication: EPILEPSY
     Dosage: 1500 MG PO
     Route: 048
     Dates: end: 20060901
  2. KEPPRA [Suspect]
     Indication: EPILEPSY
     Dosage: 1000 MG /D
     Dates: start: 20060901
  3. INSULIN HUMULIN [Concomitant]
  4. HUMULIN N [Concomitant]
  5. FOLIC ACID [Concomitant]
  6. LAXATIVES [Concomitant]

REACTIONS (3)
  - ABORTION THREATENED [None]
  - CAESAREAN SECTION [None]
  - DRUG EXPOSURE DURING PREGNANCY [None]
